FAERS Safety Report 9954913 (Version 1)
Quarter: 2014Q1

REPORT INFORMATION
  Report Type: Report from Study
  Country: US (occurrence: US)
  Receive Date: 20140304
  Receipt Date: 20140304
  Transmission Date: 20141002
  Serious: No
  Sender: FDA-Public Use
  Company Number: US-ABBVIE-13P-163-1079297-00

PATIENT
  Age: 30 Year
  Sex: Female
  Weight: 65.83 kg

DRUGS (5)
  1. HUMIRA [Suspect]
     Indication: CROHN^S DISEASE
     Dates: start: 20130402, end: 20130402
  2. HUMIRA [Interacting]
     Dates: start: 20130416, end: 20130417
  3. ACETAMINOPHEN [Interacting]
     Indication: HEADACHE
     Dates: end: 201304
  4. VISINE AC [Concomitant]
     Indication: EYE PRURITUS
     Dates: start: 20130412, end: 20130412
  5. VISINE AC [Concomitant]
     Indication: OCULAR HYPERAEMIA

REACTIONS (4)
  - Eyelid oedema [Recovered/Resolved]
  - Eyelid oedema [Recovered/Resolved]
  - Asthma [Recovered/Resolved]
  - Drug interaction [Unknown]
